FAERS Safety Report 24186832 (Version 1)
Quarter: 2024Q3

REPORT INFORMATION
  Report Type: Spontaneous
  Country: US (occurrence: US)
  Receive Date: 20240808
  Receipt Date: 20240808
  Transmission Date: 20241017
  Serious: No
  Sender: SANOFI AVENTIS
  Company Number: US-SA-SAC20240806000123

PATIENT
  Age: 42 Year
  Sex: Female
  Weight: 55.7 kg

DRUGS (1)
  1. DUPIXENT [Suspect]
     Active Substance: DUPILUMAB
     Indication: Dermatitis atopic
     Dosage: 300 MG QOW
     Route: 058

REACTIONS (1)
  - Dermatitis atopic [Recovered/Resolved]

NARRATIVE: CASE EVENT DATE: 20240731
